FAERS Safety Report 5930942-7 (Version None)
Quarter: 2008Q4

REPORT INFORMATION
  Report Type: 
  Country: None (occurrence: None)
  Receive Date: 20081002
  Receipt Date: 20080606
  Transmission Date: 20090506
  Serious: Yes (Hospitalization)
  Sender: FDA-Public Use
  Company Number: 2008-0016826

PATIENT
  Sex: Male

DRUGS (6)
  1. TRUVADA [Suspect]
     Dates: start: 20060301
  2. ZERIT [Concomitant]
  3. APTIVUS [Concomitant]
  4. FUZEON [Concomitant]
  5. PREZISTA [Concomitant]
  6. ISENTRESS (ANTIVIRALS FOR SYSTEMIC USE) [Concomitant]

REACTIONS (3)
  - BLOOD CREATININE INCREASED [None]
  - GLOMERULAR FILTRATION RATE DECREASED [None]
  - RENAL IMPAIRMENT [None]
